FAERS Safety Report 5530769-4 (Version None)
Quarter: 2007Q4

REPORT INFORMATION
  Report Type: 
  Country: None (occurrence: None)
  Receive Date: 20071130
  Receipt Date: 20071120
  Transmission Date: 20080405
  Serious: Yes (Other)
  Sender: FDA-Public Use
  Company Number: NL-ELI_LILLY_AND_COMPANY-NL200711005049

PATIENT
  Sex: Male

DRUGS (3)
  1. CYMBALTA [Suspect]
     Indication: DEPRESSION
     Dosage: 30 MG, 2/D
     Route: 065
     Dates: start: 20070423
  2. ACENOCOUMAROL [Concomitant]
     Dosage: 1 MG, UNKNOWN
     Route: 065
     Dates: start: 20070522, end: 20071021
  3. FRAXODI [Concomitant]
     Dosage: 1/D FOR 10 DAYS
     Route: 065
     Dates: start: 20070522

REACTIONS (1)
  - THROMBOSIS [None]
